FAERS Safety Report 4433954-8 (Version None)
Quarter: 2004Q3

REPORT INFORMATION
  Report Type: 
  Country: None (occurrence: None)
  Receive Date: 20040825
  Receipt Date: 20040811
  Transmission Date: 20050211
  Serious: Yes (Other)
  Sender: FDA-Public Use
  Company Number: USA040875238

PATIENT
  Age: 4 Year
  Sex: Male
  Weight: 15 kg

DRUGS (2)
  1. STRATTERA [Suspect]
     Indication: ATTENTION DEFICIT/HYPERACTIVITY DISORDER
     Dosage: 25 MG DAY
     Dates: start: 20040601
  2. FOCALIN (DEXMETHYLPHENIDATE HYDROCLORIDE) [Concomitant]

REACTIONS (7)
  - CONVULSION [None]
  - CYANOSIS [None]
  - DIZZINESS [None]
  - ELECTROENCEPHALOGRAM ABNORMAL [None]
  - MYDRIASIS [None]
  - TRANCE [None]
  - VOMITING [None]
